FAERS Safety Report 15627424 (Version 1)
Quarter: 2018Q4

REPORT INFORMATION
  Report Type: Spontaneous
  Country: US (occurrence: US)
  Receive Date: 20181116
  Receipt Date: 20181116
  Transmission Date: 20190205
  Serious: No
  Sender: FDA-Public Use
  Company Number: None

PATIENT
  Age: 46 Year
  Sex: Female
  Weight: 69.85 kg

DRUGS (1)
  1. LEVETIRACETAM, 100MG/ML MG/ML [Suspect]
     Active Substance: LEVETIRACETAM
     Indication: AMMONIA INCREASED
     Route: 048
     Dates: start: 20181026, end: 20181116

REACTIONS (3)
  - Hepatic encephalopathy [None]
  - Dizziness [None]
  - Nausea [None]

NARRATIVE: CASE EVENT DATE: 20181116
